FAERS Safety Report 7343405-1 (Version None)
Quarter: 2011Q1

REPORT INFORMATION
  Report Type: 
  Country: None (occurrence: None)
  Receive Date: 20110308
  Receipt Date: 20110308
  Transmission Date: 20110831
  Serious: Yes (Death)
  Sender: FDA-Public Use
  Company Number: None

PATIENT
  Age: 88 Year
  Sex: Female
  Weight: 65.7716 kg

DRUGS (1)
  1. RECLAST [Suspect]
     Indication: BONE DISORDER
     Dates: start: 20100910, end: 20100911

REACTIONS (6)
  - CEREBROVASCULAR ACCIDENT [None]
  - CRYING [None]
  - DISORIENTATION [None]
  - DEMENTIA [None]
  - INFLUENZA LIKE ILLNESS [None]
  - RENAL HAEMORRHAGE [None]
